FAERS Safety Report 4384728-8 (Version None)
Quarter: 2004Q2

REPORT INFORMATION
  Report Type: 
  Country: None (occurrence: None)
  Receive Date: 20040621
  Receipt Date: 20040611
  Transmission Date: 20050107
  Serious: Yes (Other)
  Sender: FDA-Public Use
  Company Number: HQWYE442414JUN04

PATIENT
  Age: 8 Year
  Sex: Male

DRUGS (1)
  1. RAPAMUNE [Suspect]
     Indication: LIVER TRANSPLANT
     Dosage: 2 MG 1X PER 1 DAY, ORAL
     Route: 048

REACTIONS (2)
  - ANAEMIA [None]
  - HAEMOLYTIC ANAEMIA [None]
